FAERS Safety Report 23886637 (Version 1)
Quarter: 2024Q2

REPORT INFORMATION
  Report Type: Spontaneous
  Country: JP (occurrence: JP)
  Receive Date: 20240522
  Receipt Date: 20240522
  Transmission Date: 20240717
  Serious: Yes (Other)
  Sender: FDA-Public Use
  Company Number: JP-Eisai-202401907_LEN-EC_P_1

PATIENT
  Sex: Female

DRUGS (2)
  1. LENVIMA [Suspect]
     Active Substance: LENVATINIB
     Indication: Uterine cancer
     Route: 041
  2. KEYTRUDA [Concomitant]
     Active Substance: PEMBROLIZUMAB
     Indication: Uterine cancer
     Route: 041

REACTIONS (6)
  - Adrenal insufficiency [Unknown]
  - Hypertension [Unknown]
  - Gingivitis [Unknown]
  - Dysphonia [Unknown]
  - Hypothyroidism [Unknown]
  - Malaise [Unknown]
